FAERS Safety Report 7756746-0 (Version None)
Quarter: 2011Q3

REPORT INFORMATION
  Report Type: 
  Country: None (occurrence: None)
  Receive Date: 20110825
  Receipt Date: 20110524
  Transmission Date: 20111222
  Serious: No
  Sender: FDA-Public Use
  Company Number: 330367

PATIENT
  Age: 62 Year
  Sex: Male

DRUGS (1)
  1. VICTOZA [Suspect]
     Indication: TYPE 2 DIABETES MELLITUS
     Dosage: 1.2 OR 1.8 MG, QD (DEPENDANT UPON BLOOD SUGAR LEVEL), SUBCUTANEOUS
     Route: 058
     Dates: start: 20100101

REACTIONS (2)
  - BLOOD GLUCOSE INCREASED [None]
  - BLOOD GLUCOSE DECREASED [None]
